FAERS Safety Report 20746882 (Version 1)
Quarter: 2022Q2

REPORT INFORMATION
  Report Type: Spontaneous
  Country: US (occurrence: US)
  Receive Date: 20220425
  Receipt Date: 20220425
  Transmission Date: 20220720
  Serious: No
  Sender: FDA-Public Use
  Company Number: US-BRISTOL-MYERS SQUIBB COMPANY-2022-019225

PATIENT
  Age: 65 Year
  Sex: Male
  Weight: 83.460 kg

DRUGS (1)
  1. REVLIMID [Suspect]
     Active Substance: LENALIDOMIDE
     Indication: Plasma cell myeloma
     Dosage: FREQUENCY: 14 DAYS ON AND 7 DAYS OFF
     Route: 048

REACTIONS (2)
  - Pruritus [Unknown]
  - Off label use [Unknown]
